FAERS Safety Report 5646318-6 (Version None)
Quarter: 2008Q1

REPORT INFORMATION
  Report Type: 
  Country: None (occurrence: None)
  Receive Date: 20080227
  Receipt Date: 20080227
  Transmission Date: 20080703
  Serious: No
  Sender: FDA-Public Use
  Company Number: None

PATIENT
  Age: 36 Year
  Sex: Male
  Weight: 83.9154 kg

DRUGS (1)
  1. CHANTIX [Suspect]
     Indication: SMOKING CESSATION THERAPY
     Dosage: 0.5MG THEN 1MG DAILY THEN TWICE PO
     Route: 048
     Dates: start: 20080131, end: 20080220

REACTIONS (2)
  - ABNORMAL DREAMS [None]
  - INSOMNIA [None]
